FAERS Safety Report 6892501-1 (Version None)
Quarter: 2010Q3

REPORT INFORMATION
  Report Type: 
  Country: None (occurrence: None)
  Receive Date: 20100731
  Receipt Date: 20080611
  Transmission Date: 20110219
  Serious: No
  Sender: FDA-Public Use
  Company Number: US-PFIZER INC-2008040999

PATIENT
  Sex: Male
  Weight: 125 kg

DRUGS (13)
  1. CAVERJECT [Suspect]
     Indication: ERECTILE DYSFUNCTION
     Dates: start: 20070404
  2. COZAAR [Concomitant]
  3. ALISKIREN [Concomitant]
  4. PLAVIX [Concomitant]
  5. LASIX [Concomitant]
  6. AMLODIPINE [Concomitant]
  7. ATENOLOL [Concomitant]
  8. NEXIUM [Concomitant]
  9. ENALAPRIL [Concomitant]
  10. VYTORIN [Concomitant]
  11. TAMSULOSIN HYDROCHLORIDE [Concomitant]
  12. TRICOR [Concomitant]
  13. AVANDIA [Concomitant]

REACTIONS (1)
  - DRUG INEFFECTIVE [None]
